FAERS Safety Report 17854848 (Version 4)
Quarter: 2020Q4

REPORT INFORMATION
  Report Type: Spontaneous
  Country: US (occurrence: US)
  Receive Date: 20200603
  Receipt Date: 20201029
  Transmission Date: 20210113
  Serious: Yes (Death)
  Sender: FDA-Public Use
  Company Number: US-PFIZER INC-2020173487

PATIENT
  Age: 76 Year
  Sex: Male
  Weight: 105.6 kg

DRUGS (5)
  1. VYNDAMAX [Suspect]
     Active Substance: TAFAMIDIS
     Indication: AMYLOIDOSIS
     Dosage: 61 MG, 1X/DAY (IN THE MORNING)
     Route: 048
  2. VYNDAMAX [Suspect]
     Active Substance: TAFAMIDIS
     Indication: CARDIAC FAILURE
     Dosage: 61 MG, DAILY
     Route: 048
     Dates: start: 202001
  3. VYNDAMAX [Suspect]
     Active Substance: TAFAMIDIS
     Indication: HEPATIC ENZYME ABNORMAL
  4. VYNDAMAX [Suspect]
     Active Substance: TAFAMIDIS
     Indication: ATRIAL FIBRILLATION
  5. VYNDAMAX [Suspect]
     Active Substance: TAFAMIDIS
     Indication: THROMBOSIS

REACTIONS (4)
  - COVID-19 [Fatal]
  - Fluid retention [Unknown]
  - SARS-CoV-2 test positive [Recovered/Resolved]
  - Weight fluctuation [Unknown]

NARRATIVE: CASE EVENT DATE: 20200908
